FAERS Safety Report 24193924 (Version 1)
Quarter: 2024Q3

REPORT INFORMATION
  Report Type: Spontaneous
  Country: GB (occurrence: GB)
  Receive Date: 20240809
  Receipt Date: 20240809
  Transmission Date: 20241016
  Serious: Yes (Life-Threatening, Hospitalization)
  Sender: ACCORD
  Company Number: GB-MLMSERVICE-20240722-PI138634-00270-1

PATIENT
  Age: 42 Year
  Sex: Female

DRUGS (2)
  1. TACROLIMUS [Suspect]
     Active Substance: TACROLIMUS
     Indication: Immunosuppressant drug therapy
  2. PREDNISOLONE [Suspect]
     Active Substance: PREDNISOLONE
     Indication: Immunosuppressant drug therapy

REACTIONS (3)
  - Small intestinal obstruction [Recovering/Resolving]
  - Pneumocystis jirovecii infection [Unknown]
  - Strongyloidiasis [Recovering/Resolving]
